FAERS Safety Report 7727421-3 (Version None)
Quarter: 2011Q3

REPORT INFORMATION
  Report Type: 
  Country: None (occurrence: None)
  Receive Date: 20110902
  Receipt Date: 20110831
  Transmission Date: 20111222
  Serious: Yes (Death, Other)
  Sender: FDA-Public Use
  Company Number: VE-PFIZER INC-2011197694

PATIENT
  Age: 80 Year
  Sex: Female

DRUGS (1)
  1. LIPITOR [Suspect]
     Indication: CATHETERISATION CARDIAC
     Dosage: 80 MG, 1X/DAY
     Route: 048
     Dates: start: 20100801

REACTIONS (2)
  - RESPIRATORY ARREST [None]
  - CATHETERISATION CARDIAC [None]
